FAERS Safety Report 16381239 (Version 1)
Quarter: 2019Q2

REPORT INFORMATION
  Report Type: Spontaneous
  Country: DE (occurrence: DE)
  Receive Date: 20190603
  Receipt Date: 20190603
  Transmission Date: 20190711
  Serious: Yes (Hospitalization)
  Sender: FDA-Public Use
  Company Number: DE-SUN PHARMACEUTICAL INDUSTRIES LTD-2019RR-198422

PATIENT
  Sex: Male

DRUGS (3)
  1. DICLAC 75 MG [Concomitant]
     Indication: PERIPHERAL SWELLING
     Dosage: ()
     Route: 065
     Dates: start: 201811
  2. CEFPODOXIM 200 MG [Concomitant]
     Indication: CYSTITIS NONINFECTIVE
     Dosage: ()
     Route: 065
     Dates: start: 201811
  3. CIPROFLOXACIN. [Suspect]
     Active Substance: CIPROFLOXACIN
     Indication: CYSTITIS NONINFECTIVE
     Dosage: ANWENDUNG 7-MAL ()
     Route: 065

REACTIONS (13)
  - Decreased appetite [Unknown]
  - Listless [Unknown]
  - Muscle twitching [Unknown]
  - Vomiting [Unknown]
  - Palpitations [Unknown]
  - Exercise tolerance decreased [Unknown]
  - Gastric disorder [Unknown]
  - Malaise [Unknown]
  - Nausea [Unknown]
  - Adverse reaction [Unknown]
  - Myalgia [Unknown]
  - Feeling abnormal [Unknown]
  - Fatigue [Unknown]

NARRATIVE: CASE EVENT DATE: 2018
